FAERS Safety Report 5005950-3 (Version None)
Quarter: 2006Q2

REPORT INFORMATION
  Report Type: 
  Country: None (occurrence: None)
  Receive Date: 20060518
  Receipt Date: 20060324
  Transmission Date: 20061013
  Serious: Yes (Life-Threatening, Hospitalization, Disabling)
  Sender: FDA-Public Use
  Company Number: JP-BOEHRINGER INGELHEIM PHARMACEUTICALS, INC.-2006-BP-03367NB

PATIENT
  Sex: Male
  Weight: 38.5 kg

DRUGS (6)
  1. MEXITIL [Suspect]
     Indication: VENTRICULAR EXTRASYSTOLES
     Route: 048
     Dates: start: 20050328, end: 20050502
  2. ADALAT [Suspect]
     Indication: HYPERTENSION
     Route: 048
     Dates: start: 20050127, end: 20060504
  3. PLETAL [Concomitant]
     Indication: ARTERIOSCLEROSIS OBLITERANS
     Route: 048
     Dates: start: 20050203, end: 20050504
  4. ALPRAZOLAM [Concomitant]
     Indication: SLEEP DISORDER
     Route: 048
     Dates: start: 20050428, end: 20050502
  5. SIGMART [Concomitant]
     Indication: ANGINA PECTORIS
     Route: 048
     Dates: start: 20050121, end: 20050529
  6. FERROMIA (SODIUM FERROUS CITRATE) [Concomitant]
     Indication: ANAEMIA
     Route: 048
     Dates: start: 20050331, end: 20050519

REACTIONS (6)
  - CARDIAC FAILURE [None]
  - CONDITION AGGRAVATED [None]
  - DIALYSIS [None]
  - RENAL FAILURE [None]
  - TOXIC EPIDERMAL NECROLYSIS [None]
  - VENTRICULAR EXTRASYSTOLES [None]
